FAERS Safety Report 8608378-X (Version None)
Quarter: 2012Q3

REPORT INFORMATION
  Report Type: 
  Country: None (occurrence: None)
  Receive Date: 20120821
  Receipt Date: 20120813
  Transmission Date: 20120928
  Serious: Yes (Other)
  Sender: FDA-Public Use
  Company Number: US-ABBOTT-12P-163-0940396-00

PATIENT
  Sex: Female
  Weight: 45.4 kg

DRUGS (12)
  1. HUMIRA [Suspect]
     Dates: start: 20120601
  2. NEXIUM [Concomitant]
     Indication: GASTROOESOPHAGEAL REFLUX DISEASE
  3. ZOFRAN [Concomitant]
     Indication: VOMITING
  4. ZOFRAN [Concomitant]
     Indication: NAUSEA
  5. CALCIUM [Concomitant]
     Indication: PRODUCT USED FOR UNKNOWN INDICATION
  6. HUMIRA [Suspect]
     Indication: CROHN'S DISEASE
     Dates: start: 20120418
  7. CARAFATE [Concomitant]
     Indication: GASTRITIS
     Route: 048
  8. IRON VITAMIN D [Concomitant]
     Indication: PRODUCT USED FOR UNKNOWN INDICATION
  9. IMURAN [Concomitant]
     Indication: CROHN'S DISEASE
  10. CARAFATE [Concomitant]
     Indication: GASTROOESOPHAGEAL REFLUX DISEASE
  11. DEXELENT [Concomitant]
     Indication: GASTROOESOPHAGEAL REFLUX DISEASE
  12. LIDOCAINE [Concomitant]
     Indication: PRODUCT USED FOR UNKNOWN INDICATION

REACTIONS (17)
  - ELECTROCARDIOGRAM QT PROLONGED [None]
  - ABDOMINAL PAIN UPPER [None]
  - VOMITING [None]
  - NAUSEA [None]
  - FALL [None]
  - INAPPROPRIATE SCHEDULE OF DRUG ADMINISTRATION [None]
  - ABDOMINAL PAIN [None]
  - SPINAL FRACTURE [None]
  - CROHN'S DISEASE [None]
  - SPINAL PAIN [None]
  - DRUG EFFECT DECREASED [None]
  - APHAGIA [None]
  - ARTHRALGIA [None]
  - DRUG INEFFECTIVE [None]
  - PAIN IN EXTREMITY [None]
  - MUSCLE SPASMS [None]
  - FREQUENT BOWEL MOVEMENTS [None]
